FAERS Safety Report 21380532 (Version 1)
Quarter: 2022Q3

REPORT INFORMATION
  Report Type: Spontaneous
  Country: DE (occurrence: DE)
  Receive Date: 20220927
  Receipt Date: 20220927
  Transmission Date: 20221026
  Serious: Yes (Life-Threatening, Hospitalization)
  Sender: FDA-Public Use
  Company Number: DE-ADRED-08117-01

PATIENT
  Age: 80 Year
  Sex: Male
  Weight: 88 kg

DRUGS (9)
  1. METFORMIN HYDROCHLORIDE\SITAGLIPTIN PHOSPHATE [Suspect]
     Active Substance: METFORMIN HYDROCHLORIDE\SITAGLIPTIN PHOSPHATE
     Dosage: 1000|50 MG, 1-0-0-0, TABLETS
     Route: 048
  2. TORSEMIDE [Suspect]
     Active Substance: TORSEMIDE
     Dosage: 10MG, 1-1-0-0, TABLETS
     Route: 048
  3. EDOXABAN [Suspect]
     Active Substance: EDOXABAN
     Dosage: 30 MG, 1-0-0-0, TABLETS
     Route: 048
  4. ASPIRIN [Suspect]
     Active Substance: ASPIRIN
     Dosage: 100MG, 0-1-0-0, TABLETS
     Route: 048
  5. SACUBITRIL\VALSARTAN [Suspect]
     Active Substance: SACUBITRIL\VALSARTAN
     Dosage: 24|26 MG, 1-0-0-0, TABLETS
     Route: 048
  6. TRAMADOL [Concomitant]
     Active Substance: TRAMADOL
     Dosage: 100 MG, 1-0-1-0, PROLONGED-RELEASE TABLETS
     Route: 048
  7. MELATONIN [Concomitant]
     Active Substance: MELATONIN
     Dosage: 2 MG, 0-0-1-0, PROLONGED-RELEASE TABLETS
     Route: 048
  8. ATORVASTATIN [Concomitant]
     Active Substance: ATORVASTATIN
     Dosage: 40 MG, 0-0-1-0, TABLETS
     Route: 048
  9. CARVEDILOL [Concomitant]
     Active Substance: CARVEDILOL
     Dosage: 6.25 MG, 1-0-1-0, TABLET
     Route: 048

REACTIONS (4)
  - Muscular weakness [Unknown]
  - Dizziness [Unknown]
  - Fall [Unknown]
  - Haematochezia [Unknown]
